FAERS Safety Report 13666628 (Version 1)
Quarter: 2017Q2

REPORT INFORMATION
  Report Type: Spontaneous
  Country: US (occurrence: US)
  Receive Date: 20170619
  Receipt Date: 20170619
  Transmission Date: 20170830
  Serious: No
  Sender: FDA-Public Use
  Company Number: US-ROCHE-1461609

PATIENT
  Sex: Female

DRUGS (5)
  1. BENAZEPRIL [Concomitant]
     Active Substance: BENAZEPRIL HYDROCHLORIDE
  2. ATENOLOL. [Concomitant]
     Active Substance: ATENOLOL
  3. SYNTHROID [Concomitant]
     Active Substance: LEVOTHYROXINE SODIUM
  4. XELODA [Suspect]
     Active Substance: CAPECITABINE
     Indication: BREAST CANCER
     Dosage: 7 DAYS ON 7 DAYS OFF
     Route: 048
     Dates: start: 20130919, end: 20140123
  5. OXYCODONE [Concomitant]
     Active Substance: OXYCODONE

REACTIONS (1)
  - Radiation injury [Recovered/Resolved]
